FAERS Safety Report 4277573-5 (Version None)
Quarter: 2004Q1

REPORT INFORMATION
  Report Type: 
  Country: None (occurrence: None)
  Receive Date: 20040121
  Receipt Date: 20040114
  Transmission Date: 20041129
  Serious: Yes (Death)
  Sender: FDA-Public Use
  Company Number: 163-20785-03110175

PATIENT
  Age: 75 Year
  Sex: Male
  Weight: 127.0072 kg

DRUGS (13)
  1. THALOMID [Suspect]
     Indication: HAEMORRHAGE
     Dosage: 50-150 MG, DAILY, ORAL; 200 MG, DAILY, ORAL
     Route: 048
     Dates: start: 20031107, end: 20031128
  2. THALOMID [Suspect]
     Indication: METASTASES TO LUNG
     Dosage: 50-150 MG, DAILY, ORAL; 200 MG, DAILY, ORAL
     Route: 048
     Dates: start: 20031107, end: 20031128
  3. THALOMID [Suspect]
     Indication: RENAL CANCER METASTATIC
     Dosage: 50-150 MG, DAILY, ORAL; 200 MG, DAILY, ORAL
     Route: 048
     Dates: start: 20031107, end: 20031128
  4. THALOMID [Suspect]
     Indication: HAEMORRHAGE
     Dosage: 50-150 MG, DAILY, ORAL; 200 MG, DAILY, ORAL
     Route: 048
     Dates: start: 20031129
  5. THALOMID [Suspect]
     Indication: METASTASES TO LUNG
     Dosage: 50-150 MG, DAILY, ORAL; 200 MG, DAILY, ORAL
     Route: 048
     Dates: start: 20031129
  6. THALOMID [Suspect]
     Indication: RENAL CANCER METASTATIC
     Dosage: 50-150 MG, DAILY, ORAL; 200 MG, DAILY, ORAL
     Route: 048
     Dates: start: 20031129
  7. CARDIZEM [Concomitant]
  8. LASIX [Concomitant]
  9. MIRTAZAPINE [Concomitant]
  10. POTASSIUM (POTASSIUM) [Concomitant]
  11. VITAMINS (VITAMINS) [Concomitant]
  12. ARTHRITIS SUPPLEMENT [Concomitant]
  13. SLEEPING PILL [Concomitant]

REACTIONS (3)
  - ARTHRALGIA [None]
  - PARAESTHESIA [None]
  - VISION BLURRED [None]
